FAERS Safety Report 4761994-8 (Version None)
Quarter: 2005Q3

REPORT INFORMATION
  Report Type: 
  Country: None (occurrence: None)
  Receive Date: 20050831
  Receipt Date: 20050606
  Transmission Date: 20060218
  Serious: No
  Sender: FDA-Public Use
  Company Number: PHEH2005US03073

PATIENT
  Age: 76 Year
  Sex: Female

DRUGS (2)
  1. ENABLEX [Suspect]
     Indication: HYPERTONIC BLADDER
     Dosage: 7.5 MG, QD
     Dates: start: 20050307
  2. VESICARE [Suspect]

REACTIONS (2)
  - BLOOD PRESSURE DECREASED [None]
  - VISION BLURRED [None]
